FAERS Safety Report 14859520 (Version 1)
Quarter: 2018Q2

REPORT INFORMATION
  Report Type: Not Available
  Country: US (occurrence: US)
  Receive Date: 20180508
  Receipt Date: 20180508
  Transmission Date: 20180711
  Serious: No
  Sender: FDA-Public Use
  Company Number: US-NEUROCRINE BIOSCIENCES INC.-2018NBI01195

PATIENT
  Age: 43 Year
  Sex: Female

DRUGS (6)
  1. INGREZZA [Suspect]
     Active Substance: VALBENAZINE
     Indication: TARDIVE DYSKINESIA
     Dosage: EVERY OTHER NIGHT
     Route: 048
     Dates: start: 201709
  2. INGREZZA [Suspect]
     Active Substance: VALBENAZINE
     Route: 048
  3. INGREZZA [Suspect]
     Active Substance: VALBENAZINE
     Dosage: 2 DAYS ON AND 1 DAY OFF
     Route: 048
     Dates: start: 2017
  4. INGREZZA [Suspect]
     Active Substance: VALBENAZINE
     Route: 048
  5. VRAYLAR [Concomitant]
     Active Substance: CARIPRAZINE
  6. INGREZZA [Suspect]
     Active Substance: VALBENAZINE
     Route: 048

REACTIONS (2)
  - Off label use [Unknown]
  - Fatigue [Unknown]
